FAERS Safety Report 5560335-6 (Version None)
Quarter: 2007Q4

REPORT INFORMATION
  Report Type: 
  Country: None (occurrence: None)
  Receive Date: 20071214
  Receipt Date: 20071106
  Transmission Date: 20080405
  Serious: No
  Sender: FDA-Public Use
  Company Number: US-ABBOTT-07P-163-0423698-00

PATIENT
  Sex: Female
  Weight: 87.622 kg

DRUGS (9)
  1. HUMIRA [Suspect]
     Indication: CROHN'S DISEASE
     Dates: start: 20070703, end: 20071026
  2. PRENATAL VITAMINS [Concomitant]
     Indication: DRUG USE FOR UNKNOWN INDICATION
     Route: 048
     Dates: start: 20070731, end: 20071026
  3. FIBER NATURAL PRODUCTS [Concomitant]
     Indication: DRUG USE FOR UNKNOWN INDICATION
     Route: 048
     Dates: start: 20070703, end: 20071026
  4. BALSALAZIDE DISODIUM [Concomitant]
     Indication: CROHN'S DISEASE
     Route: 048
     Dates: start: 20070703, end: 20071026
  5. LOPERAMIDE HYDROCHLORIDE [Concomitant]
     Indication: DRUG USE FOR UNKNOWN INDICATION
     Route: 048
     Dates: start: 20070703, end: 20071026
  6. CALCIUM CARBONATE [Concomitant]
     Indication: DYSPEPSIA
     Route: 048
     Dates: start: 20070703, end: 20071026
  7. PREDNISONE [Concomitant]
     Indication: CROHN'S DISEASE
     Route: 048
     Dates: start: 20071012, end: 20071018
  8. PREDNISONE [Concomitant]
     Route: 048
     Dates: start: 20071019, end: 20071026
  9. CANASA RECTAL SUPPOSITORY [Concomitant]
     Indication: CROHN'S DISEASE
     Dosage: TOPICAL/VAGINAL
     Dates: start: 20071012, end: 20071014

REACTIONS (2)
  - CROHN'S DISEASE [None]
  - NASOPHARYNGITIS [None]
